FAERS Safety Report 22194007 (Version 1)
Quarter: 2023Q2

REPORT INFORMATION
  Report Type: Spontaneous
  Country: CA (occurrence: CA)
  Receive Date: 20230411
  Receipt Date: 20230411
  Transmission Date: 20230721
  Serious: Yes (Life-Threatening, Other)
  Sender: FDA-Public Use
  Company Number: CA-BAXTER-2023BAX017873

PATIENT
  Age: 4 Year
  Sex: Female
  Weight: 16 kg

DRUGS (13)
  1. ONDANSETRON [Suspect]
     Active Substance: ONDANSETRON
     Indication: Catheterisation venous
     Dosage: 1.6 MILLIGRAM, DOSAGE FORM: NOT SPECIFIED
     Route: 042
  2. DEXMEDETOMIDINE [Suspect]
     Active Substance: DEXMEDETOMIDINE
     Indication: Catheterisation venous
     Dosage: 8.0 MICROGRAM, (DOSAGE FORM: NOT SPECIFIED)
     Route: 042
  3. GLYCOPYRROLATE [Suspect]
     Active Substance: GLYCOPYRROLATE
     Indication: Catheterisation venous
     Dosage: 140.0 MICROGRAM
     Route: 042
  4. ISOVUE [Suspect]
     Active Substance: IOPAMIDOL
     Indication: Scan with contrast
     Dosage: (DOSAGE FORM: NOT SPECIFIED)
     Route: 042
  5. NEOSTIGMINE METHYLSULFATE [Suspect]
     Active Substance: NEOSTIGMINE METHYLSULFATE
     Indication: Catheterisation venous
     Dosage: 0.7 MILLIGRAM
     Route: 042
  6. OMNIPAQUE [Suspect]
     Active Substance: IOHEXOL
     Indication: Scan with contrast
     Dosage: DOSAGE FORM: SOLUTION
     Route: 042
  7. VISIPAQUE [Suspect]
     Active Substance: IODIXANOL
     Indication: Scan with contrast
     Dosage: DOSAGE FORM: SOLUTION INTRA ARTERIAL
     Route: 042
  8. PROPOFOL [Concomitant]
     Active Substance: PROPOFOL
     Dosage: DOSAGE FORM: NOT SPECIFIED
     Route: 065
  9. REMIFENTANIL [Concomitant]
     Active Substance: REMIFENTANIL
     Dosage: DOSAGE FORM: POWDER FOR SOLUTION INTRAVENOUS
     Route: 065
  10. ROCURONIUM [Concomitant]
     Active Substance: ROCURONIUM BROMIDE
     Dosage: DOSAGE FORM: NOT SPECIFIED
     Route: 065
  11. SEVOFLURANE [Concomitant]
     Active Substance: SEVOFLURANE
     Dosage: DOSAGE FORM: LIQUID INHALATION
     Route: 065
  12. TACROLIMUS [Concomitant]
     Active Substance: TACROLIMUS
     Route: 065
  13. URSODIOL [Concomitant]
     Active Substance: URSODIOL
     Dosage: DOSAGE FORM: NOT SPECIFIED
     Route: 065

REACTIONS (5)
  - Oxygen saturation decreased [Recovered/Resolved]
  - Anaphylactic shock [Recovered/Resolved]
  - Flushing [Recovered/Resolved]
  - Hypotension [Recovered/Resolved]
  - Rash [Recovered/Resolved]
